FAERS Safety Report 21824930 (Version 1)
Quarter: 2023Q1

REPORT INFORMATION
  Report Type: Spontaneous
  Country: CN (occurrence: CN)
  Receive Date: 20230105
  Receipt Date: 20230105
  Transmission Date: 20230418
  Serious: Yes (Other)
  Sender: FDA-Public Use
  Company Number: CN-MLMSERVICE-20221222-3999994-1

PATIENT
  Age: 38 Year
  Sex: Male

DRUGS (9)
  1. GANCICLOVIR [Suspect]
     Active Substance: GANCICLOVIR
     Indication: Antiviral prophylaxis
     Route: 065
     Dates: start: 2021, end: 2021
  2. SULFAMETHOXAZOLE\TRIMETHOPRIM [Suspect]
     Active Substance: SULFAMETHOXAZOLE\TRIMETHOPRIM
     Indication: Antifungal prophylaxis
     Route: 065
     Dates: start: 2021, end: 2021
  3. MYCOPHENOLATE MOFETIL [Concomitant]
     Active Substance: MYCOPHENOLATE MOFETIL
     Indication: Immunosuppressant drug therapy
     Dosage: STANDARD TRIPLE IMMUNOSUPPRESSIVE REGIMEN
     Dates: start: 2021
  4. TACROLIMUS [Concomitant]
     Active Substance: TACROLIMUS
     Indication: Immunosuppressant drug therapy
     Dosage: STANDARD TRIPLE IMMUNOSUPPRESSIVE REGIMEN
     Dates: start: 2021
  5. PREDNISONE [Concomitant]
     Active Substance: PREDNISONE
     Indication: Immunosuppressant drug therapy
     Dosage: STANDARD TRIPLE IMMUNOSUPPRESSIVE REGIMEN
     Dates: start: 2021
  6. ROXADUSTAT [Concomitant]
     Active Substance: ROXADUSTAT
     Indication: Anaemia
     Dosage: ADDED LATER DUE TO HIS HEMOGLOBIN (HB) BELOW THE TARGET RANGE, 3 TIMES WEEKLY
     Dates: start: 201907, end: 201909
  7. ROXADUSTAT [Concomitant]
     Active Substance: ROXADUSTAT
     Dates: start: 201909, end: 202006
  8. ROXADUSTAT [Concomitant]
     Active Substance: ROXADUSTAT
     Dates: start: 202006, end: 2021
  9. RHUEPO [Concomitant]
     Indication: Anaemia
     Dosage: SUBCUTANEOUSLY AT 10,000 IU TWICE A WEEK
     Route: 058
     Dates: start: 2018, end: 202107

REACTIONS (1)
  - Leukopenia [Unknown]

NARRATIVE: CASE EVENT DATE: 20210101
